FAERS Safety Report 9643035 (Version 1)
Quarter: 2013Q4

REPORT INFORMATION
  Report Type: Spontaneous
  Country: CA (occurrence: None)
  Receive Date: 20131022
  Receipt Date: 20131022
  Transmission Date: 20140711
  Serious: Yes (Hospitalization)
  Sender: FDA-Public Use
  Company Number: 2013-002201

PATIENT
  Age: 60 Year
  Sex: Female
  Weight: 91 kg

DRUGS (1)
  1. ACTONEL (RISEDRONATE SODIUM)TABLET, 150MG [Suspect]
     Indication: OSTEOPETROSIS
     Route: 048

REACTIONS (3)
  - Pathological fracture [None]
  - Femur fracture [None]
  - Fall [None]
